FAERS Safety Report 7049753-7 (Version None)
Quarter: 2010Q4

REPORT INFORMATION
  Report Type: 
  Country: None (occurrence: None)
  Receive Date: 20101013
  Receipt Date: 20101004
  Transmission Date: 20110411
  Serious: No
  Sender: FDA-Public Use
  Company Number: 2010100003

PATIENT
  Age: 47 Year
  Sex: Male

DRUGS (2)
  1. ONSOLIS [Suspect]
     Indication: CANCER PAIN
     Dosage: TITRATE UP TO 4-200 MCG FILMS/DOSE (UP TO 4 TIMES DAILY), BU, (600 MCG, TWICE DAILY, AS NEEDED),BU
     Route: 002
     Dates: start: 20100113, end: 20100209
  2. ONSOLIS [Suspect]
     Indication: CANCER PAIN
     Dosage: TITRATE UP TO 4-200 MCG FILMS/DOSE (UP TO 4 TIMES DAILY), BU, (600 MCG, TWICE DAILY, AS NEEDED),BU
     Route: 002
     Dates: start: 20100220

REACTIONS (2)
  - BACK INJURY [None]
  - INCORRECT DOSE ADMINISTERED [None]
